FAERS Safety Report 23896774 (Version 1)
Quarter: 2024Q2

REPORT INFORMATION
  Report Type: Spontaneous
  Country: JP (occurrence: JP)
  Receive Date: 20240524
  Receipt Date: 20240524
  Transmission Date: 20240715
  Serious: Yes (Life-Threatening, Other)
  Sender: FDA-Public Use
  Company Number: JP-BAXTER-2024BAX018487

PATIENT
  Age: 74 Year
  Sex: Female
  Weight: 59.4 kg

DRUGS (3)
  1. DOXIL [Suspect]
     Active Substance: DOXORUBICIN HYDROCHLORIDE
     Indication: Ovarian cancer
     Dosage: 75 MGX1
     Route: 042
     Dates: start: 20240509, end: 20240509
  2. DEXAMETHASONE SODIUM PHOSPHATE [Concomitant]
     Active Substance: DEXAMETHASONE PHOSPHATE\DEXAMETHASONE SODIUM PHOSPHATE
     Dosage: UNK
     Route: 065
     Dates: start: 20240509
  3. GRANISETRON [Concomitant]
     Active Substance: GRANISETRON
     Dosage: UNK
     Route: 065
     Dates: start: 20240509

REACTIONS (3)
  - Respiratory distress [Unknown]
  - Cardiac arrest [Recovered/Resolved]
  - Oral discharge [Unknown]

NARRATIVE: CASE EVENT DATE: 20240509
